FAERS Safety Report 6235904-0 (Version None)
Quarter: 2009Q2

REPORT INFORMATION
  Report Type: 
  Country: None (occurrence: None)
  Receive Date: 20090617
  Receipt Date: 20090617
  Transmission Date: 20091009
  Serious: No
  Sender: FDA-Public Use
  Company Number: None

PATIENT
  Age: 58 Year
  Sex: Female
  Weight: 45.3597 kg

DRUGS (2)
  1. COPAXONE [Suspect]
     Indication: MULTIPLE SCLEROSIS
     Dosage: 20 MG 1X PER DAY SQ
     Route: 058
     Dates: start: 20090403, end: 20090410
  2. COPAXONE [Suspect]
     Indication: MULTIPLE SCLEROSIS
     Dosage: 20 MG 1X PER DAY SQ
     Route: 058
     Dates: start: 20090501, end: 20090501

REACTIONS (10)
  - ACTIVITIES OF DAILY LIVING IMPAIRED [None]
  - ASTHENIA [None]
  - DIPLOPIA [None]
  - FATIGUE [None]
  - FEELING COLD [None]
  - INFLUENZA LIKE ILLNESS [None]
  - MIDDLE INSOMNIA [None]
  - MUSCULOSKELETAL STIFFNESS [None]
  - NAUSEA [None]
  - NERVOUSNESS [None]
